FAERS Safety Report 17273958 (Version 1)
Quarter: 2020Q1

REPORT INFORMATION
  Report Type: Spontaneous
  Country: IT (occurrence: IT)
  Receive Date: 20200115
  Receipt Date: 20200115
  Transmission Date: 20200409
  Serious: Yes (Hospitalization, Other)
  Sender: FDA-Public Use
  Company Number: IT-ELI_LILLY_AND_COMPANY-IT202001002356

PATIENT
  Age: 43 Year
  Sex: Male

DRUGS (2)
  1. ANSIOLIN [Concomitant]
     Active Substance: DIAZEPAM
     Indication: PRODUCT USED FOR UNKNOWN INDICATION
  2. ZYPADHERA [Suspect]
     Active Substance: OLANZAPINE PAMOATE
     Indication: PRODUCT USED FOR UNKNOWN INDICATION
     Dosage: 300 MG, OTHER (4WEEKS)
     Route: 065
     Dates: start: 2019

REACTIONS (9)
  - Irritability [Recovering/Resolving]
  - Pyrexia [Recovering/Resolving]
  - Dizziness [Unknown]
  - Sedation [Recovering/Resolving]
  - Tachycardia [Recovering/Resolving]
  - Somnolence [Unknown]
  - Gait disturbance [Unknown]
  - Disorientation [Recovering/Resolving]
  - Confusional state [Recovering/Resolving]

NARRATIVE: CASE EVENT DATE: 20200103
